FAERS Safety Report 13777378 (Version 2)
Quarter: 2017Q3

REPORT INFORMATION
  Report Type: Spontaneous
  Country: FI (occurrence: FI)
  Receive Date: 20170721
  Receipt Date: 20170906
  Transmission Date: 20171127
  Serious: Yes (Hospitalization, Other)
  Sender: FDA-Public Use
  Company Number: FI-MYLANLABS-2017M1042772

PATIENT
  Age: 55 Year
  Sex: Male

DRUGS (5)
  1. LEPONEX [Suspect]
     Active Substance: CLOZAPINE
     Dosage: UNK
     Dates: start: 201301
  2. LEPONEX [Suspect]
     Active Substance: CLOZAPINE
     Indication: PSYCHOTIC DISORDER
     Dosage: 500 MG, PM
  3. LEPONEX [Suspect]
     Active Substance: CLOZAPINE
     Indication: SCHIZOPHRENIA
     Dosage: UNK
     Dates: start: 201003
  4. LEPONEX [Suspect]
     Active Substance: CLOZAPINE
     Dosage: UNK
  5. CHLORPROMAZINE. [Concomitant]
     Active Substance: CHLORPROMAZINE
     Indication: PRODUCT USED FOR UNKNOWN INDICATION
     Dosage: 200 MG, PM

REACTIONS (9)
  - Hypercholesterolaemia [Unknown]
  - Abdominal discomfort [Recovered/Resolved]
  - Back pain [Not Recovered/Not Resolved]
  - Tachycardia [Unknown]
  - Tenderness [Recovered/Resolved]
  - Eosinophilia [Unknown]
  - Schizophrenia [Unknown]
  - Refusal of treatment by patient [Unknown]
  - Diarrhoea [Recovered/Resolved]

NARRATIVE: CASE EVENT DATE: 2006
